FAERS Safety Report 5820229-5 (Version None)
Quarter: 2008Q3

REPORT INFORMATION
  Report Type: 
  Country: None (occurrence: None)
  Receive Date: 20080724
  Receipt Date: 20080716
  Transmission Date: 20090109
  Serious: Yes (Other)
  Sender: FDA-Public Use
  Company Number: JP-BRISTOL-MYERS SQUIBB COMPANY-14205827

PATIENT
  Sex: Female

DRUGS (4)
  1. ABILIFY [Suspect]
     Dosage: STRENGTH:3MG TAB,INTERUPTED ON 21MAY08.RESTARTED ON UNK DATE AT 3MG/D AND INCREASED TO 6MG UNK DATE
     Route: 048
     Dates: start: 20080515
  2. ZOLOFT [Concomitant]
     Dosage: FORM: TABLET
  3. LORAZEPAM [Concomitant]
     Dosage: STRENGTH: TABLET
  4. AMOBAN [Concomitant]
     Dosage: STRENGTH:TABLET

REACTIONS (2)
  - ABORTION INDUCED [None]
  - PREGNANCY [None]
